FAERS Safety Report 4577805-X (Version None)
Quarter: 2005Q1

REPORT INFORMATION
  Report Type: 
  Country: None (occurrence: None)
  Receive Date: 20050209
  Receipt Date: 20050124
  Transmission Date: 20050727
  Serious: Yes (Hospitalization, Other)
  Sender: FDA-Public Use
  Company Number: USA050189056

PATIENT
  Age: 60 Year
  Sex: Female
  Weight: 100 kg

DRUGS (2)
  1. HUMULIN N [Suspect]
     Dosage: 30 U DAY
  2. INSULIN [Suspect]
     Dates: start: 19800101

REACTIONS (10)
  - AORTIC VALVE REPLACEMENT [None]
  - BLOOD GLUCOSE DECREASED [None]
  - BODY HEIGHT DECREASED [None]
  - CATARACT OPERATION [None]
  - LEG AMPUTATION [None]
  - PHARMACEUTICAL PRODUCT COMPLAINT [None]
  - THROMBOSIS [None]
  - TRIPLE VESSEL BYPASS GRAFT [None]
  - VASCULAR GRAFT OCCLUSION [None]
  - VISUAL DISTURBANCE [None]
